FAERS Safety Report 7076761-2 (Version None)
Quarter: 2010Q4

REPORT INFORMATION
  Report Type: 
  Country: None (occurrence: None)
  Receive Date: 20101101
  Receipt Date: 20101026
  Transmission Date: 20110411
  Serious: Yes (Death, Life-Threatening, Hospitalization)
  Sender: FDA-Public Use
  Company Number: CA-CELGENEUS-028-C5013-10090549

PATIENT
  Sex: Male
  Weight: 55.6 kg

DRUGS (5)
  1. THALOMID [Suspect]
     Indication: MULTIPLE MYELOMA
     Route: 048
     Dates: start: 20100828, end: 20100904
  2. MELPHALAN [Suspect]
     Indication: MULTIPLE MYELOMA
     Route: 065
     Dates: start: 20100828, end: 20100831
  3. PREDNISONE [Suspect]
     Indication: MULTIPLE MYELOMA
     Route: 065
     Dates: start: 20100828, end: 20100831
  4. COUMADIN [Concomitant]
     Indication: ATRIAL FIBRILLATION
     Route: 048
  5. ASPIRIN [Concomitant]
     Route: 048
     Dates: start: 20100828

REACTIONS (3)
  - ANAEMIA [None]
  - BACTERAEMIA [None]
  - PNEUMONIA ASPIRATION [None]
